FAERS Safety Report 12648815 (Version 3)
Quarter: 2016Q3

REPORT INFORMATION
  Report Type: Spontaneous
  Country: US (occurrence: US)
  Receive Date: 20160812
  Receipt Date: 20160916
  Transmission Date: 20161109
  Serious: No
  Sender: FDA-Public Use
  Company Number: US-PFIZER INC-2016378423

PATIENT
  Age: 79 Year
  Sex: Male
  Weight: 76 kg

DRUGS (9)
  1. PERCOCET [Concomitant]
     Active Substance: ACETAMINOPHEN\OXYCODONE HYDROCHLORIDE
     Indication: PAIN
     Dosage: UNK, AS NEEDED, [HYDROCODONE HYDROCHLORIDE 5 MG, PARACETAMOL 325 MG]
  2. NORVASC [Concomitant]
     Active Substance: AMLODIPINE BESYLATE
     Dosage: 5 MG, UNK
  3. ZOCOR [Concomitant]
     Active Substance: SIMVASTATIN
     Dosage: 40 MG, UNK
  4. TYLENOL [Concomitant]
     Active Substance: ACETAMINOPHEN
     Indication: PAIN
     Dosage: UNK, AS NEEDED
  5. TORISEL [Suspect]
     Active Substance: TEMSIROLIMUS
     Indication: METASTATIC RENAL CELL CARCINOMA
     Dosage: UNK, WEEKLY
     Dates: start: 20150718, end: 201607
  6. ASPIRIN 81 [Concomitant]
     Active Substance: ASPIRIN
     Dosage: 81 MG, UNK
  7. ATENOLOL. [Concomitant]
     Active Substance: ATENOLOL
     Dosage: 25 MG, UNK
  8. TORISEL [Suspect]
     Active Substance: TEMSIROLIMUS
     Dosage: UNK
     Dates: start: 201507, end: 201607
  9. CYANOCOBALAMIN. [Concomitant]
     Active Substance: CYANOCOBALAMIN
     Dosage: 50 MG, UNK

REACTIONS (7)
  - Adrenal disorder [Unknown]
  - Dyspnoea exertional [Unknown]
  - Fatigue [Unknown]
  - Oedema [Unknown]
  - Disease progression [Unknown]
  - Neck pain [Recovering/Resolving]
  - Metastatic renal cell carcinoma [Unknown]
